FAERS Safety Report 25209964 (Version 1)
Quarter: 2025Q2

REPORT INFORMATION
  Report Type: Spontaneous
  Country: US (occurrence: US)
  Receive Date: 20250417
  Receipt Date: 20250417
  Transmission Date: 20250717
  Serious: No
  Sender: MERCK SHARP AND DOHME
  Company Number: US-009507513-2275427

PATIENT
  Age: 71 Year
  Sex: Female

DRUGS (3)
  1. KEYTRUDA [Suspect]
     Active Substance: PEMBROLIZUMAB
     Indication: Colon cancer
     Route: 042
     Dates: start: 202411
  2. Ivermavin [Concomitant]
  3. fermendazal [Concomitant]

REACTIONS (2)
  - Feeding disorder [Not Recovered/Not Resolved]
  - Stomach mass [Not Recovered/Not Resolved]

NARRATIVE: CASE EVENT DATE: 20241201
